FAERS Safety Report 7941986-8 (Version None)
Quarter: 2011Q4

REPORT INFORMATION
  Report Type: 
  Country: None (occurrence: None)
  Receive Date: 20111128
  Receipt Date: 20111116
  Transmission Date: 20120403
  Serious: Yes (Hospitalization, Other)
  Sender: FDA-Public Use
  Company Number: CA-UCBSA-040873

PATIENT
  Age: 65 Year
  Sex: Female
  Weight: 55 kg

DRUGS (8)
  1. CELEBREX [Concomitant]
     Indication: RHEUMATOID ARTHRITIS
     Route: 048
     Dates: start: 20080101
  2. FUROSEMIDE [Concomitant]
     Route: 048
  3. IMURAN [Concomitant]
     Indication: RHEUMATOID ARTHRITIS
     Route: 048
     Dates: start: 20010101
  4. CIMZIA [Suspect]
     Indication: RHEUMATOID ARTHRITIS
     Dosage: WEEKS 0, 2 AND 4
     Route: 058
     Dates: start: 20110408, end: 20110506
  5. CIMZIA [Suspect]
     Route: 058
     Dates: start: 20110520, end: 20110801
  6. ZANTAC [Concomitant]
     Route: 048
  7. TYLENOL ES [Concomitant]
     Indication: PAIN
     Route: 048
  8. POTASSIUM CHLORIDE [Concomitant]
     Route: 048

REACTIONS (3)
  - DIZZINESS [None]
  - SYNCOPE [None]
  - CHEST DISCOMFORT [None]
